FAERS Safety Report 6660729-1 (Version None)
Quarter: 2010Q1

REPORT INFORMATION
  Report Type: 
  Country: None (occurrence: None)
  Receive Date: 20100331
  Receipt Date: 20100322
  Transmission Date: 20100710
  Serious: Yes (Other)
  Sender: FDA-Public Use
  Company Number: US-GENENTECH-299690

PATIENT

DRUGS (2)
  1. RITUXIMAB [Suspect]
     Indication: OPSOCLONUS MYOCLONUS
     Dosage: 375 MG/M2, Q4W
     Route: 042
  2. RITUXIMAB [Suspect]
     Dosage: 375 MG/M2, Q4W
     Route: 042

REACTIONS (2)
  - COUGH [None]
  - ESCHERICHIA URINARY TRACT INFECTION [None]
